FAERS Safety Report 8964537 (Version 2)
Quarter: 2013Q1

REPORT INFORMATION
  Report Type: Spontaneous
  Country: US (occurrence: US)
  Receive Date: 20121214
  Receipt Date: 20130121
  Transmission Date: 20140127
  Serious: Yes (Hospitalization)
  Sender: FDA-Public Use
  Company Number: US-ELI_LILLY_AND_COMPANY-US201210007959

PATIENT
  Sex: Male
  Weight: 105.22 kg

DRUGS (2)
  1. ZYPREXA [Suspect]
     Dosage: UNK
     Dates: end: 20120926
  2. ZYPREXA RELPREVV [Suspect]
     Indication: PSYCHOTIC DISORDER
     Dosage: 300MG EVERY 2 WEEKS
     Route: 030

REACTIONS (4)
  - Psychotic disorder [Unknown]
  - Akathisia [Recovered/Resolved]
  - Drug ineffective [Unknown]
  - Wrong technique in drug usage process [Unknown]
